FAERS Safety Report 8227933-2 (Version None)
Quarter: 2012Q1

REPORT INFORMATION
  Report Type: 
  Country: None (occurrence: None)
  Receive Date: 20120322
  Receipt Date: 20120321
  Transmission Date: 20120608
  Serious: Yes (Death, Other)
  Sender: FDA-Public Use
  Company Number: PHHY2012GB017395

PATIENT
  Age: 57 Year
  Sex: Male
  Weight: 69 kg

DRUGS (3)
  1. DOMPERIDONE [Concomitant]
     Indication: CHEMOTHERAPY
     Dosage: 40 MG, QD
     Route: 048
     Dates: start: 20120117, end: 20120123
  2. XELODA [Suspect]
     Indication: COLON CANCER
     Dosage: 1800 MG, (1 DOSE / 3 WEEKS)
     Dates: start: 20120117, end: 20120123
  3. OXALIPLATIN [Suspect]
     Dosage: 235 MG (ONE DOSE / 3 WEEKS)
     Route: 042

REACTIONS (8)
  - BLOOD ALBUMIN DECREASED [None]
  - DIHYDROPYRIMIDINE DEHYDROGENASE DEFICIENCY [None]
  - MALAISE [None]
  - DIARRHOEA [None]
  - NAUSEA [None]
  - NEUTROPHIL COUNT DECREASED [None]
  - MUCOSAL INFLAMMATION [None]
  - BONE MARROW DISORDER [None]
